FAERS Safety Report 4697295-6 (Version None)
Quarter: 2005Q2

REPORT INFORMATION
  Report Type: 
  Country: None (occurrence: None)
  Receive Date: 20050622
  Receipt Date: 20050517
  Transmission Date: 20051028
  Serious: Yes (Hospitalization)
  Sender: FDA-Public Use
  Company Number: 2005AP02910

PATIENT
  Age: 26303 Day
  Sex: Female

DRUGS (7)
  1. NOLVADEX [Suspect]
     Indication: BREAST CANCER
     Route: 048
     Dates: start: 20050507
  2. NOLVADEX [Suspect]
     Route: 048
     Dates: start: 20050520
  3. IRESSA [Suspect]
     Indication: BREAST CANCER
     Route: 048
     Dates: start: 20050507
  4. IRESSA [Suspect]
     Route: 048
     Dates: start: 20050527
  5. ZESTORETIC [Concomitant]
     Indication: HYPERTENSION
     Route: 048
     Dates: start: 20000101
  6. SIMVASTATIN [Concomitant]
     Indication: HYPERCHOLESTEROLAEMIA
     Dates: start: 20020101
  7. ZOMETA [Concomitant]
     Indication: METASTASES TO BONE
     Dates: start: 20050512

REACTIONS (1)
  - HYPERCALCAEMIA [None]
